FAERS Safety Report 4387126-6 (Version None)
Quarter: 2004Q2

REPORT INFORMATION
  Report Type: 
  Country: None (occurrence: None)
  Receive Date: 20040625
  Receipt Date: 20040611
  Transmission Date: 20050107
  Serious: Yes (Death)
  Sender: FDA-Public Use
  Company Number: 04SPA0124

PATIENT
  Age: 84 Year
  Sex: Male

DRUGS (4)
  1. AGGRASTAT [Suspect]
     Indication: ACUTE MYOCARDIAL INFARCTION
     Dosage: 4 ML/HOUR
     Route: 042
  2. ENOXAPARIN SODIUM [Suspect]
     Indication: ACUTE MYOCARDIAL INFARCTION
     Dosage: ACUTE MYOCARDIAL INFARCTION (10000891 - ACUTE MYOCARDIAL INFARCTION)
     Dates: start: 20040504, end: 20040505
  3. ASPIRIN [Concomitant]
  4. CLOPIDOGREL(CLOPIDOGREL) [Concomitant]

REACTIONS (2)
  - CARDIOGENIC SHOCK [None]
  - UPPER GASTROINTESTINAL HAEMORRHAGE [None]
